FAERS Safety Report 5001922-3 (Version None)
Quarter: 2006Q2

REPORT INFORMATION
  Report Type: 
  Country: None (occurrence: None)
  Receive Date: 20060515
  Receipt Date: 20050930
  Transmission Date: 20061013
  Serious: Yes (Hospitalization, Other)
  Sender: FDA-Public Use
  Company Number: US-MERCK-0510USA01502

PATIENT
  Age: 52 Year
  Sex: Female
  Weight: 158 kg

DRUGS (1)
  1. VIOXX [Suspect]
     Route: 048
     Dates: start: 19990501, end: 20040901

REACTIONS (21)
  - BUNDLE BRANCH BLOCK RIGHT [None]
  - CEREBROVASCULAR ACCIDENT [None]
  - COUGH [None]
  - DEEP VEIN THROMBOSIS [None]
  - DILATATION VENTRICULAR [None]
  - DYSPNOEA [None]
  - HEPATIC TRAUMA [None]
  - LEFT VENTRICULAR FAILURE [None]
  - MITRAL VALVE INCOMPETENCE [None]
  - MULTI-ORGAN DISORDER [None]
  - MYOCARDIAL ISCHAEMIA [None]
  - NIGHT SWEATS [None]
  - OEDEMA PERIPHERAL [None]
  - PAIN IN EXTREMITY [None]
  - PULMONARY EMBOLISM [None]
  - RENAL FAILURE [None]
  - RENAL INJURY [None]
  - SLEEP DISORDER [None]
  - TRICUSPID VALVE INCOMPETENCE [None]
  - VENTRICULAR HYPERTROPHY [None]
  - WHEEZING [None]
